FAERS Safety Report 13704243 (Version 1)
Quarter: 2017Q2

REPORT INFORMATION
  Report Type: Spontaneous
  Country: US (occurrence: US)
  Receive Date: 20170629
  Receipt Date: 20170629
  Transmission Date: 20170830
  Serious: Yes (Hospitalization)
  Sender: FDA-Public Use
  Company Number: None

PATIENT
  Sex: Female

DRUGS (3)
  1. OLANZEPINE [Concomitant]
     Active Substance: OLANZAPINE
  2. CLONAZEPAM. [Concomitant]
     Active Substance: CLONAZEPAM
  3. LONSURF [Suspect]
     Active Substance: TIPIRACIL HYDROCHLORIDE\TRIFLURIDINE
     Indication: COLON CANCER
     Dosage: 20-8.19 MG TAB 20/BTL 3 TABS BID 1-5; 8-12 BY MOUTH (PO)
     Dates: start: 20170412

REACTIONS (3)
  - Fluid retention [None]
  - Abdominal distension [None]
  - Ovarian neoplasm [None]

NARRATIVE: CASE EVENT DATE: 2017
